FAERS Safety Report 24463148 (Version 1)
Quarter: 2024Q4

REPORT INFORMATION
  Report Type: Report from Study
  Country: AT (occurrence: AT)
  Receive Date: 20241018
  Receipt Date: 20241018
  Transmission Date: 20250114
  Serious: No
  Sender: SANDOZ
  Company Number: AT-SANDOZ-SDZ2023AT053708

PATIENT
  Sex: Female

DRUGS (2)
  1. OMNITROPE [Suspect]
     Active Substance: SOMATROPIN
     Indication: Growth hormone deficiency
     Dosage: 0.40 MG
     Route: 065
     Dates: start: 20231108
  2. OMNITROPE [Suspect]
     Active Substance: SOMATROPIN
     Dosage: 0.45
     Route: 065

REACTIONS (3)
  - Injection site discharge [Recovered/Resolved]
  - Injection site pain [Recovered/Resolved]
  - Product dose omission issue [Unknown]

NARRATIVE: CASE EVENT DATE: 20231108
